FAERS Safety Report 18640305 (Version 1)
Quarter: 2020Q4

REPORT INFORMATION
  Report Type: Spontaneous
  Country: US (occurrence: US)
  Receive Date: 20201220
  Receipt Date: 20201220
  Transmission Date: 20210114
  Serious: No
  Sender: FDA-Public Use
  Company Number: US-ASTRAZENECA-2020SF60035

PATIENT
  Sex: Female
  Weight: 82.1 kg

DRUGS (15)
  1. SYMBICORT [Suspect]
     Active Substance: BUDESONIDE\FORMOTEROL FUMARATE DIHYDRATE
     Indication: ASTHMA
     Dosage: 1 PUFFS TWICE DAILY
     Route: 055
  2. TYLENOL [Concomitant]
     Active Substance: ACETAMINOPHEN
     Indication: BACK PAIN
     Route: 048
     Dates: start: 2016
  3. CELECOXIB. [Concomitant]
     Active Substance: CELECOXIB
     Indication: ARTHRITIS
     Route: 048
     Dates: start: 1980
  4. SYNTHROID [Concomitant]
     Active Substance: LEVOTHYROXINE SODIUM
     Indication: HYPOTHYROIDISM
     Route: 048
  5. ZYRTEC OR XYZAL [Concomitant]
     Indication: HYPERSENSITIVITY
     Route: 048
     Dates: start: 2000
  6. IBUPROFEN. [Concomitant]
     Active Substance: IBUPROFEN
     Indication: BACK PAIN
     Route: 048
  7. DULOXETINE ER [Concomitant]
     Indication: NEURALGIA
     Route: 048
     Dates: start: 2017
  8. MONTELUKAST [Concomitant]
     Active Substance: MONTELUKAST SODIUM
     Indication: ASTHMA
     Route: 048
  9. MUCINEX [Concomitant]
     Active Substance: GUAIFENESIN
     Indication: NASAL CONGESTION
     Dosage: AS REQUIRED
     Route: 048
  10. GABAPENTIN. [Concomitant]
     Active Substance: GABAPENTIN
     Indication: NEURALGIA
     Route: 048
     Dates: start: 1990
  11. LIDOCAINE ROLLER [Concomitant]
     Indication: BACK PAIN
     Dosage: AS REQUIRED
     Route: 061
     Dates: start: 2019
  12. LIDOCAINE SPRAY [Concomitant]
     Indication: BACK PAIN
     Dosage: AS REQUIRED
     Route: 061
  13. SYMBICORT [Suspect]
     Active Substance: BUDESONIDE\FORMOTEROL FUMARATE DIHYDRATE
     Indication: ASTHMA
     Dosage: 160/4.5 UG/INHAL,TWO PUFFS TWICE DAILY
     Route: 055
     Dates: start: 202011
  14. VALSARTAN HCTZ [Concomitant]
     Active Substance: HYDROCHLOROTHIAZIDE\VALSARTAN
     Indication: HYPERTENSION
     Route: 048
     Dates: start: 1980
  15. ROPINIROLE. [Concomitant]
     Active Substance: ROPINIROLE
     Indication: RESTLESS LEGS SYNDROME
     Route: 048
     Dates: start: 1990

REACTIONS (5)
  - Headache [Unknown]
  - Weight increased [Unknown]
  - Irritability [Unknown]
  - Cough [Unknown]
  - Dysphonia [Unknown]
